FAERS Safety Report 25315750 (Version 3)
Quarter: 2025Q3

REPORT INFORMATION
  Report Type: Spontaneous
  Country: JP (occurrence: JP)
  Receive Date: 20250515
  Receipt Date: 20250808
  Transmission Date: 20251021
  Serious: Yes (Other)
  Sender: ASTELLAS
  Company Number: JP-ASTELLAS-2024JP000758

PATIENT
  Age: 85 Year
  Sex: Male

DRUGS (11)
  1. HARNAL [Suspect]
     Active Substance: TAMSULOSIN HYDROCHLORIDE
     Indication: Benign prostatic hyperplasia
     Route: 048
  2. XTANDI [Suspect]
     Active Substance: ENZALUTAMIDE
     Indication: Prostate cancer metastatic
     Dosage: AFTER BREAKFAST
     Route: 048
     Dates: start: 20250508, end: 20250525
  3. XTANDI [Suspect]
     Active Substance: ENZALUTAMIDE
     Indication: Metastases to bone
     Route: 048
     Dates: start: 20250605
  4. VIBEGRON [Suspect]
     Active Substance: VIBEGRON
     Indication: Pollakiuria
     Route: 048
     Dates: start: 202307
  5. Betanis Tablets 25mg [Concomitant]
     Indication: Pollakiuria
     Route: 048
     Dates: start: 20240129
  6. EDOXABAN TOSYLATE [Concomitant]
     Active Substance: EDOXABAN TOSYLATE
     Indication: Prophylaxis
     Route: 048
  7. Goofice tablet 5 mg [Concomitant]
     Indication: Product used for unknown indication
     Route: 065
  8. LEUPLIN [Concomitant]
     Active Substance: LEUPROLIDE ACETATE
     Indication: Prostate cancer
     Route: 065
     Dates: start: 2024
  9. LEUPLIN [Concomitant]
     Active Substance: LEUPROLIDE ACETATE
     Route: 065
  10. Bicalutamide 80mg [Concomitant]
     Indication: Prostate cancer
     Route: 048
     Dates: start: 2024
  11. Bicalutamide 80mg [Concomitant]
     Route: 048

REACTIONS (15)
  - Urinary retention [Unknown]
  - Urinary retention [Unknown]
  - Urinary retention [Unknown]
  - Hypoaesthesia [Unknown]
  - Hypoaesthesia [Unknown]
  - Pollakiuria [Unknown]
  - Pelvic pain [Unknown]
  - Dizziness [Unknown]
  - Micturition urgency [Unknown]
  - Bladder dysfunction [Unknown]
  - Urethral pain [Unknown]
  - Abdominal pain upper [Unknown]
  - Sleep deficit [Unknown]
  - Constipation [Unknown]
  - Musculoskeletal stiffness [Unknown]

NARRATIVE: CASE EVENT DATE: 20250501
